FAERS Safety Report 7825816-0 (Version None)
Quarter: 2011Q4

REPORT INFORMATION
  Report Type: 
  Country: None (occurrence: None)
  Receive Date: 20111019
  Receipt Date: 20100223
  Transmission Date: 20120403
  Serious: No
  Sender: FDA-Public Use
  Company Number: US-BAYER-201014901NA

PATIENT
  Age: 76 Year
  Sex: Male

DRUGS (2)
  1. CIPROFLOXACIN [Suspect]
     Indication: INFECTION PROPHYLAXIS
  2. HYDROCODONE BITARTRATE [Concomitant]

REACTIONS (2)
  - NAUSEA [None]
  - MALAISE [None]
